FAERS Safety Report 7880237-X (Version None)
Quarter: 2011Q4

REPORT INFORMATION
  Report Type: 
  Country: None (occurrence: None)
  Receive Date: 20111101
  Receipt Date: 20111025
  Transmission Date: 20120403
  Serious: No
  Sender: FDA-Public Use
  Company Number: US-PFIZER INC-2011235773

PATIENT
  Sex: Female
  Weight: 99.773 kg

DRUGS (11)
  1. ESTRADIOL [Suspect]
     Dosage: UNK
  2. WELLBUTRIN [Concomitant]
     Indication: DEPRESSION
     Dosage: 75 MG, UNK
     Dates: start: 20110715
  3. GEODON [Suspect]
     Indication: BIPOLAR DISORDER
     Dosage: 40 MG IN MORNING AND 160 MG IN EVENING
     Route: 048
     Dates: start: 20090527
  4. GEODON [Suspect]
     Indication: PSYCHOTIC DISORDER
     Dosage: 160 MG, 1X/DAY
     Dates: start: 20111010
  5. LAMICTAL [Concomitant]
     Indication: AFFECTIVE DISORDER
     Dosage: UNK
  6. LAMICTAL [Concomitant]
     Indication: BIPOLAR DISORDER
  7. MAGNESIUM [Concomitant]
     Indication: CARDIAC DISORDER
     Dosage: UNK
  8. TRILEPTAL [Concomitant]
     Dosage: UNK
  9. HALCION [Concomitant]
     Indication: INSOMNIA
     Dosage: 0.5 MG, UNK
     Dates: start: 20080910
  10. SEROQUEL [Concomitant]
     Indication: BIPOLAR DISORDER
     Dosage: 50 MG, UNK
     Dates: start: 20110722
  11. ALLOPURINOL [Suspect]
     Dosage: UNK

REACTIONS (1)
  - ALOPECIA [None]
